FAERS Safety Report 9057387 (Version 1)
Quarter: 2013Q1

REPORT INFORMATION
  Report Type: Spontaneous
  Country: IT (occurrence: IT)
  Receive Date: 20130204
  Receipt Date: 20130204
  Transmission Date: 20140127
  Serious: Yes (Hospitalization)
  Sender: FDA-Public Use
  Company Number: PHHY2013IT009223

PATIENT
  Age: 47 Year
  Sex: Female

DRUGS (8)
  1. ALPRAZOLAM [Suspect]
     Dosage: 20 DF, TOTAL
     Route: 048
     Dates: start: 20120912, end: 20120912
  2. ZOLPIDEM [Suspect]
     Dosage: 30 DF, TOTAL
     Route: 048
     Dates: start: 20120912, end: 20120912
  3. LITHIUM CARBONATE [Concomitant]
  4. PREGABALIN [Concomitant]
  5. SODIUM VALPROATE [Concomitant]
  6. VENLAFAXINE [Concomitant]
  7. CLOZAPINE [Concomitant]
  8. LEVOTHYROXINE [Concomitant]

REACTIONS (2)
  - Toxicity to various agents [Recovering/Resolving]
  - Sopor [Recovering/Resolving]
